FAERS Safety Report 24960662 (Version 2)
Quarter: 2025Q2

REPORT INFORMATION
  Report Type: Spontaneous
  Country: PT (occurrence: PT)
  Receive Date: 20250212
  Receipt Date: 20250408
  Transmission Date: 20250716
  Serious: Yes (Other)
  Sender: PFIZER
  Company Number: None

PATIENT
  Age: 82 Year
  Sex: Female

DRUGS (8)
  1. ALDACTONE [Suspect]
     Active Substance: SPIRONOLACTONE
     Dosage: 25 MG, 1X/DAY (FASTING)
     Route: 048
     Dates: start: 20250128, end: 20250130
  2. ALDACTONE [Suspect]
     Active Substance: SPIRONOLACTONE
     Dosage: 12.5 MG, 1X/DAY
     Route: 048
     Dates: start: 20250131
  3. COVERAM [Suspect]
     Active Substance: AMLODIPINE\PERINDOPRIL
     Indication: Hypertension
     Dosage: 15 MG, 1X/DAY (DINNER)
     Route: 048
     Dates: start: 20250127, end: 20250130
  4. BISOPROLOL [Concomitant]
     Active Substance: BISOPROLOL
  5. RIVAROXABAN [Concomitant]
     Active Substance: RIVAROXABAN
  6. ESOMEPRAZOLE SODIUM [Concomitant]
     Active Substance: ESOMEPRAZOLE SODIUM
  7. STUGERON FORTE [Concomitant]
  8. ATORVASTATIN [Concomitant]
     Active Substance: ATORVASTATIN

REACTIONS (1)
  - Blood potassium abnormal [Recovering/Resolving]

NARRATIVE: CASE EVENT DATE: 20250128
